FAERS Safety Report 19133265 (Version 1)
Quarter: 2021Q2

REPORT INFORMATION
  Report Type: Spontaneous
  Country: US (occurrence: US)
  Receive Date: 20210413
  Receipt Date: 20210413
  Transmission Date: 20210717
  Serious: Yes (Other)
  Sender: FDA-Public Use
  Company Number: None

PATIENT
  Age: 40 Year
  Sex: Female
  Weight: 58.97 kg

DRUGS (1)
  1. SUMATRIPTAN 100MG [Suspect]
     Active Substance: SUMATRIPTAN
     Indication: MIGRAINE
     Dosage: ?          OTHER FREQUENCY:1@ONSET;OTHER ROUTE:REPEST AFTER 2 HRS /PO?
     Dates: start: 20090309, end: 201003

REACTIONS (3)
  - Product substitution issue [None]
  - Therapy non-responder [None]
  - Headache [None]

NARRATIVE: CASE EVENT DATE: 20090309
